FAERS Safety Report 6258259-4 (Version None)
Quarter: 2009Q3

REPORT INFORMATION
  Report Type: 
  Country: None (occurrence: None)
  Receive Date: 20090707
  Receipt Date: 20090702
  Transmission Date: 20100115
  Serious: Yes (Hospitalization)
  Sender: FDA-Public Use
  Company Number: AU-BRISTOL-MYERS SQUIBB COMPANY-14668164

PATIENT
  Age: 51 Year
  Sex: Female
  Weight: 93 kg

DRUGS (8)
  1. BLINDED: BRIVANIB ALANINATE [Suspect]
     Indication: COLORECTAL CANCER METASTATIC
     Route: 048
     Dates: start: 20090422
  2. CETUXIMAB [Suspect]
     Indication: COLORECTAL CANCER METASTATIC
     Route: 042
     Dates: start: 20090615, end: 20090615
  3. BLINDED: PLACEBO [Suspect]
     Indication: COLORECTAL CANCER METASTATIC
     Route: 048
     Dates: start: 20090422
  4. DEXAMETHASONE [Concomitant]
     Route: 048
     Dates: start: 20090610, end: 20090610
  5. PHENERGAN [Concomitant]
     Route: 042
     Dates: start: 20090610, end: 20090610
  6. ACETAMINOPHEN [Concomitant]
     Indication: PAIN
     Dates: start: 20090529
  7. NEUROFEN PLUS [Concomitant]
     Indication: PAIN
     Dates: start: 20090530
  8. STEMETIL [Concomitant]
     Indication: NAUSEA
     Dates: start: 20090530

REACTIONS (9)
  - ALANINE AMINOTRANSFERASE INCREASED [None]
  - ASPARTATE AMINOTRANSFERASE INCREASED [None]
  - BLOOD ALKALINE PHOSPHATASE INCREASED [None]
  - BLOOD BILIRUBIN INCREASED [None]
  - BLOOD LACTATE DEHYDROGENASE INCREASED [None]
  - FATIGUE [None]
  - GAMMA-GLUTAMYLTRANSFERASE INCREASED [None]
  - JAUNDICE CHOLESTATIC [None]
  - PAIN [None]
